FAERS Safety Report 4707200-1 (Version None)
Quarter: 2005Q3

REPORT INFORMATION
  Report Type: 
  Country: None (occurrence: None)
  Receive Date: 20050706
  Receipt Date: 20050627
  Transmission Date: 20060218
  Serious: Yes (Other)
  Sender: FDA-Public Use
  Company Number: 200515373US

PATIENT
  Sex: Female
  Weight: 50 kg

DRUGS (6)
  1. ARAVA [Suspect]
     Indication: RHEUMATOID ARTHRITIS
     Dates: start: 20030101, end: 20050625
  2. ENBREL [Concomitant]
     Indication: RHEUMATOID ARTHRITIS
     Dosage: DOSE: UNKNOWN
  3. NIFEDIPINE [Concomitant]
     Indication: HYPERTENSION
     Dosage: DOSE: UNK
  4. ATENOLOL [Concomitant]
     Indication: HYPERTENSION
     Dosage: DOSE: UNK
  5. PREDNISONE TAB [Concomitant]
     Indication: RHEUMATOID ARTHRITIS
     Dosage: DOSE: UNK
  6. DAPSONE [Concomitant]
     Indication: RHEUMATOID ARTHRITIS
     Dosage: DOSE: UNK

REACTIONS (3)
  - DYSPNOEA [None]
  - PAIN [None]
  - RHEUMATOID LUNG [None]
